FAERS Safety Report 5224104-9 (Version None)
Quarter: 2007Q1

REPORT INFORMATION
  Report Type: 
  Country: None (occurrence: None)
  Receive Date: 20070130
  Receipt Date: 20070126
  Transmission Date: 20070707
  Serious: Yes (Other)
  Sender: FDA-Public Use
  Company Number: JP-BRISTOL-MYERS SQUIBB COMPANY-13652698

PATIENT
  Age: 61 Year
  Sex: Female

DRUGS (2)
  1. PACLITAXEL [Suspect]
     Indication: BREAST CANCER
     Route: 041
  2. DOCETAXEL [Suspect]
     Indication: BREAST CANCER

REACTIONS (1)
  - SCLERODERMA [None]
